FAERS Safety Report 19148550 (Version 7)
Quarter: 2025Q3

REPORT INFORMATION
  Report Type: Report from Study
  Country: US (occurrence: US)
  Receive Date: 20210417
  Receipt Date: 20250710
  Transmission Date: 20251021
  Serious: Yes (Other)
  Sender: NOVARTIS
  Company Number: US-NOVARTISPH-NVSC2021US086548

PATIENT
  Sex: Female

DRUGS (3)
  1. KISQALI [Suspect]
     Active Substance: RIBOCICLIB SUCCINATE
     Indication: Breast cancer metastatic
     Route: 065
     Dates: start: 202001
  2. KISQALI [Suspect]
     Active Substance: RIBOCICLIB SUCCINATE
     Route: 065
     Dates: start: 202001
  3. KISQALI [Suspect]
     Active Substance: RIBOCICLIB SUCCINATE
     Dosage: 400 MG, QD
     Route: 065

REACTIONS (5)
  - Eye haemorrhage [Unknown]
  - Tumour marker increased [Unknown]
  - White blood cell count decreased [Unknown]
  - Fatigue [Unknown]
  - Diarrhoea [Unknown]
